FAERS Safety Report 8894037 (Version 1)
Quarter: 2012Q4

REPORT INFORMATION
  Report Type: 
  Country: US (occurrence: US)
  Receive Date: 20121108
  Receipt Date: 20121108
  Transmission Date: 20130627
  Serious: Yes (Other)
  Sender: FDA-Public Use
  Company Number: US-PFIZER INC-2008097931

PATIENT
  Age: 83 Year
  Sex: Male
  Weight: 84.55 kg

DRUGS (1)
  1. CALAN SR [Suspect]
     Indication: BLOOD PRESSURE HIGH
     Dosage: 240 mg, 1x/day
     Route: 048
     Dates: start: 1983

REACTIONS (2)
  - Blood pressure inadequately controlled [Not Recovered/Not Resolved]
  - Dyspnoea [Unknown]
